FAERS Safety Report 7141495-2 (Version None)
Quarter: 2010Q4

REPORT INFORMATION
  Report Type: 
  Country: None (occurrence: None)
  Receive Date: 20101126
  Receipt Date: 20101112
  Transmission Date: 20110411
  Serious: Yes (Hospitalization)
  Sender: FDA-Public Use
  Company Number: 1000017432

PATIENT
  Age: 83 Year
  Sex: Male

DRUGS (6)
  1. ESCITALOPRAM [Suspect]
     Indication: DEPRESSION
     Dosage: 1 DOSAGE FORM (1 DOSAGE, FORMS, 1 IN 1 D), ORAL
     Route: 048
     Dates: start: 20101009, end: 20101108
  2. COUMADIN [Suspect]
     Indication: ATRIAL FIBRILLATION
     Dosage: (1 DOSAGE FORMS, AS REQUIRED), ORAL
     Route: 048
     Dates: start: 20090901, end: 20101108
  3. ALLOPURINOL [Concomitant]
  4. ESOPRAL (ESOMEPRAZOLE) (ESOMEPRAZOLE) [Concomitant]
  5. ASPIRIN [Concomitant]
  6. RYTMONORM (PROPAFENONE) (PROPAFENONE) [Concomitant]

REACTIONS (3)
  - GINGIVAL BLEEDING [None]
  - HYPOCOAGULABLE STATE [None]
  - INTERNATIONAL NORMALISED RATIO INCREASED [None]
